FAERS Safety Report 8291311-0 (Version None)
Quarter: 2012Q2

REPORT INFORMATION
  Report Type: 
  Country: None (occurrence: None)
  Receive Date: 20120417
  Receipt Date: 20120412
  Transmission Date: 20120825
  Serious: Yes (Hospitalization)
  Sender: FDA-Public Use
  Company Number: US-GLAXOSMITHKLINE-A0764381A

PATIENT
  Age: 47 Year
  Sex: Male
  Weight: 98.7 kg

DRUGS (5)
  1. HYDROCHLOROTHIAZIDE [Concomitant]
  2. ZOCOR [Concomitant]
  3. AVANDIA [Suspect]
     Indication: TYPE 2 DIABETES MELLITUS
     Dosage: 4MG PER DAY
     Route: 048
     Dates: start: 20050101
  4. AVANDAMET [Suspect]
     Indication: TYPE 2 DIABETES MELLITUS
     Dosage: 1TAB TWICE PER DAY
     Route: 048
     Dates: start: 20040810
  5. LOTREL [Concomitant]

REACTIONS (1)
  - CEREBROVASCULAR ACCIDENT [None]
